FAERS Safety Report 9650967 (Version 2)
Quarter: 2013Q4

REPORT INFORMATION
  Report Type: Spontaneous
  Country: US (occurrence: US)
  Receive Date: 20131029
  Receipt Date: 20131104
  Transmission Date: 20140711
  Serious: No
  Sender: FDA-Public Use
  Company Number: US-PFIZER INC-2013304990

PATIENT
  Age: 66 Year
  Sex: Female
  Weight: 66 kg

DRUGS (2)
  1. PREMARIN [Suspect]
     Indication: BLADDER DISORDER
     Dosage: UNK, MONTHLY
     Route: 067
     Dates: start: 201210, end: 201310
  2. PREMARIN [Suspect]
     Dosage: 1 MG, 1X/DAY
     Route: 067
     Dates: start: 201310, end: 201310

REACTIONS (2)
  - Pruritus [Unknown]
  - Hypersensitivity [Unknown]
